FAERS Safety Report 6607090-6 (Version None)
Quarter: 2010Q1

REPORT INFORMATION
  Report Type: 
  Country: None (occurrence: None)
  Receive Date: 20100219
  Receipt Date: 20100211
  Transmission Date: 20100710
  Serious: No
  Sender: FDA-Public Use
  Company Number: 006782

PATIENT
  Sex: Female
  Weight: 59.8 kg

DRUGS (8)
  1. LEVETIRACETAM [Suspect]
     Indication: CONVULSION
     Dosage: 4000 MG QD, ORAL; 3000 MG, ORAL; 2000 MG QD, ORAL; 500 MG BID, ORAL; 500 MG, AT BED TIME, ORAL;  ORA
     Route: 048
     Dates: start: 20090101, end: 20090101
  2. LEVETIRACETAM [Suspect]
     Indication: CONVULSION
     Dosage: 4000 MG QD, ORAL; 3000 MG, ORAL; 2000 MG QD, ORAL; 500 MG BID, ORAL; 500 MG, AT BED TIME, ORAL;  ORA
     Route: 048
     Dates: end: 20100204
  3. LEVETIRACETAM [Suspect]
     Indication: CONVULSION
     Dosage: 4000 MG QD, ORAL; 3000 MG, ORAL; 2000 MG QD, ORAL; 500 MG BID, ORAL; 500 MG, AT BED TIME, ORAL;  ORA
     Route: 048
     Dates: start: 20090101
  4. LORAZEPAM [Concomitant]
  5. CITRUCEL [Concomitant]
  6. CALTRATE [Concomitant]
  7. NASACORT [Concomitant]
  8. OMEPRAZOLE [Concomitant]

REACTIONS (9)
  - ASTHENIA [None]
  - BALANCE DISORDER [None]
  - CHILLS [None]
  - CONTUSION [None]
  - DIZZINESS [None]
  - GASTROOESOPHAGEAL REFLUX DISEASE [None]
  - HAEMORRHOIDS [None]
  - OVERDOSE [None]
  - TREMOR [None]
